FAERS Safety Report 13602131 (Version 5)
Quarter: 2022Q4

REPORT INFORMATION
  Report Type: Report from Study
  Country: IT (occurrence: IT)
  Receive Date: 20170601
  Receipt Date: 20221013
  Transmission Date: 20230112
  Serious: Yes (Other)
  Sender: FDA-Public Use
  Company Number: IT-PFIZER INC-2017238938

PATIENT
  Age: 13 Year
  Sex: Male

DRUGS (24)
  1. DOXORUBICIN HYDROCHLORIDE [Suspect]
     Active Substance: DOXORUBICIN HYDROCHLORIDE
     Indication: Acute lymphocytic leukaemia
     Dosage: 44.1 MG, CYCLIC
     Route: 042
     Dates: start: 20170123, end: 20170220
  2. VINCRISTINE SULFATE [Suspect]
     Active Substance: VINCRISTINE SULFATE
     Indication: Acute lymphocytic leukaemia
     Dosage: 2 MG, UNK
     Route: 042
     Dates: start: 20170123, end: 20170220
  3. GLIVEC [Suspect]
     Active Substance: IMATINIB MESYLATE
     Indication: Acute lymphocytic leukaemia
     Dosage: 300 OT, UNK
     Route: 048
     Dates: start: 20160721
  4. GLIVEC [Suspect]
     Active Substance: IMATINIB MESYLATE
     Dosage: 400 MG, 1X/DAY
     Route: 048
     Dates: start: 20170102
  5. GLIVEC [Suspect]
     Active Substance: IMATINIB MESYLATE
     Dosage: 500 MG, QD
     Route: 048
     Dates: start: 20170102, end: 20170223
  6. GLIVEC [Suspect]
     Active Substance: IMATINIB MESYLATE
     Dosage: 400 MG, QD
     Route: 048
  7. ASPARAGINASE [Suspect]
     Active Substance: ASPARAGINASE
     Indication: Acute lymphocytic leukaemia
     Dosage: 29400 IU, CYCLIC
     Dates: start: 20170126, end: 20170130
  8. BACTRIM [Concomitant]
     Active Substance: SULFAMETHOXAZOLE\TRIMETHOPRIM
     Dosage: 2 DF, QD
     Route: 065
  9. BACTRIM [Concomitant]
     Active Substance: SULFAMETHOXAZOLE\TRIMETHOPRIM
     Dosage: 2 DF, 1X/DAY
     Route: 065
  10. OMEPRAZOLE [Concomitant]
     Active Substance: OMEPRAZOLE
     Dosage: 40 MG, UNK
     Route: 042
  11. DECADRON [Concomitant]
     Active Substance: DEXAMETHASONE
     Dosage: UNK
     Route: 065
  12. ENALAPRIL MALEATE [Concomitant]
     Active Substance: ENALAPRIL MALEATE
     Dosage: 10 MG, QD (5 MG X2)
     Route: 065
  13. CIPROFLOXACIN [Concomitant]
     Active Substance: CIPROFLOXACIN
     Dosage: 500 MG, BID
     Route: 065
  14. RANITIDINE [Concomitant]
     Active Substance: RANITIDINE
     Dosage: 150 MG, UNK
     Route: 065
  15. AMIKACIN [Concomitant]
     Active Substance: AMIKACIN
     Dosage: 1 G, UNK
     Route: 042
  16. PEGASPARGASE [Concomitant]
     Active Substance: PEGASPARGASE
     Indication: Chemotherapy
     Dosage: 1540 UL, QD (EV ROUTE)
     Route: 065
     Dates: start: 20161016, end: 20161016
  17. ZANTAC [Concomitant]
     Active Substance: RANITIDINE HYDROCHLORIDE
     Dosage: UNK
     Route: 065
  18. ASPARAGINASE [Concomitant]
     Active Substance: ASPARAGINASE
     Dosage: 30000 UL, QD (EV ROUTE)
     Route: 065
     Dates: start: 20161215, end: 20161227
  19. CYCLOPHOSPHAMIDE [Concomitant]
     Active Substance: CYCLOPHOSPHAMIDE
     Indication: Chemotherapy
     Dosage: 308 MG, QD (EV ROUTE)
     Route: 065
     Dates: start: 20161012, end: 20161014
  20. ETOPOSIDE [Concomitant]
     Active Substance: ETOPOSIDE
     Indication: Chemotherapy
     Dosage: 154 MG, BID (EV ROUTE)
     Route: 065
     Dates: start: 20161212, end: 20161214
  21. CEFTAZIDIME [Concomitant]
     Active Substance: CEFTAZIDIME
     Dosage: 1800 MG, TID (EV ROUTE)
     Route: 065
  22. MYCOSTATIN [Concomitant]
     Active Substance: NYSTATIN
     Dosage: UNK
     Route: 065
  23. METHYLPREDNISOLONE [Concomitant]
     Active Substance: METHYLPREDNISOLONE
     Dosage: 10 MG, QD
     Route: 037
     Dates: start: 20161214, end: 20161214
  24. DEXAMETHASONE [Concomitant]
     Active Substance: DEXAMETHASONE
     Dosage: 30 MG, 1X/DAY, (EV ROUTE)
     Route: 065
     Dates: start: 20161011, end: 20161015

REACTIONS (3)
  - Haematochezia [Recovered/Resolved]
  - Faeces soft [Recovered/Resolved]
  - Mucous stools [Recovered/Resolved]

NARRATIVE: CASE EVENT DATE: 20170207
